FAERS Safety Report 8373968-9 (Version None)
Quarter: 2012Q2

REPORT INFORMATION
  Report Type: 
  Country: None (occurrence: None)
  Receive Date: 20120521
  Receipt Date: 20120515
  Transmission Date: 20120825
  Serious: Yes (Hospitalization)
  Sender: FDA-Public Use
  Company Number: PHHO2012DE005854

PATIENT
  Sex: Female
  Weight: 62.2 kg

DRUGS (7)
  1. IBUPROFEN [Suspect]
     Dosage: 800 MG, (2 X1 TABL, AS NEEDED)
     Route: 048
     Dates: start: 20100615, end: 20120412
  2. PREDNISOLONE [Concomitant]
     Dosage: UNK
  3. ILARIS [Suspect]
     Indication: JUVENILE ARTHRITIS
     Dosage: 249 MG, UNK
     Dates: start: 20100802
  4. METHOTREXATE [Suspect]
     Indication: JUVENILE ARTHRITIS
     Dosage: 15 MG, QW
     Route: 048
     Dates: start: 20100615
  5. PANTOPRAZOLE [Concomitant]
     Indication: GASTRITIS
     Dosage: 20 MGX1, UNK
     Route: 048
     Dates: start: 20120412
  6. OMEPRAZOLE [Concomitant]
     Indication: GASTRITIS
     Dosage: 20 MGX2, UNK
     Route: 048
     Dates: start: 20100615, end: 20120412
  7. ETANERCEPT [Suspect]
     Dosage: UNK
     Dates: start: 20050104, end: 20060509

REACTIONS (5)
  - CONDITION AGGRAVATED [None]
  - PAIN [None]
  - JUVENILE ARTHRITIS [None]
  - RASH [None]
  - DRUG RASH WITH EOSINOPHILIA AND SYSTEMIC SYMPTOMS [None]
